FAERS Safety Report 4994580-5 (Version None)
Quarter: 2006Q2

REPORT INFORMATION
  Report Type: 
  Country: None (occurrence: None)
  Receive Date: 20060505
  Receipt Date: 20050930
  Transmission Date: 20061013
  Serious: Yes (Hospitalization)
  Sender: FDA-Public Use
  Company Number: PR-MERCK-0510USA01539

PATIENT
  Age: 51 Year
  Sex: Female
  Weight: 82 kg

DRUGS (3)
  1. VIOXX [Suspect]
     Indication: ARTHRITIS
     Route: 048
     Dates: start: 20000418, end: 20020815
  2. VIOXX [Suspect]
     Route: 048
     Dates: start: 20000418, end: 20020815
  3. VIOXX [Suspect]
     Route: 048
     Dates: start: 20000418, end: 20020815

REACTIONS (7)
  - ARRHYTHMIA [None]
  - CEREBROVASCULAR ACCIDENT [None]
  - JOINT INJURY [None]
  - MYOCARDIAL INFARCTION [None]
  - ORGAN FAILURE [None]
  - PULMONARY EMBOLISM [None]
  - THROMBOSIS [None]
